FAERS Safety Report 4958342-7 (Version None)
Quarter: 2006Q1

REPORT INFORMATION
  Report Type: 
  Country: None (occurrence: None)
  Receive Date: 20060329
  Receipt Date: 20060329
  Transmission Date: 20060701
  Serious: Yes (Other)
  Sender: FDA-Public Use
  Company Number: None

PATIENT
  Age: 21 Year
  Sex: Female
  Weight: 24.0406 kg

DRUGS (1)
  1. EFFEXOR [Suspect]
     Indication: SOCIAL PHOBIA
     Dosage: 150 MG /DAY ONCE OTHER
     Dates: start: 20030201, end: 20060101

REACTIONS (6)
  - AMENORRHOEA [None]
  - ANXIETY [None]
  - BRADYCARDIA [None]
  - DRUG WITHDRAWAL SYNDROME [None]
  - VISION BLURRED [None]
  - VISUAL DISTURBANCE [None]
